FAERS Safety Report 14482503 (Version 1)
Quarter: 2018Q1

REPORT INFORMATION
  Report Type: Spontaneous
  Country: US (occurrence: US)
  Receive Date: 20180202
  Receipt Date: 20180202
  Transmission Date: 20180509
  Serious: Yes (Hospitalization, Other)
  Sender: FDA-Public Use
  Company Number: US-ZYDUS-018934

PATIENT
  Age: 46 Year
  Sex: Female

DRUGS (2)
  1. HYDROXYCHLOROQUINE [Suspect]
     Active Substance: HYDROXYCHLOROQUINE
     Indication: PRODUCT USED FOR UNKNOWN INDICATION
     Route: 048
  2. ONDANSETRON [Interacting]
     Active Substance: ONDANSETRON
     Indication: PRODUCT USED FOR UNKNOWN INDICATION
     Route: 042

REACTIONS (10)
  - Toxicity to various agents [Unknown]
  - Drug interaction [Unknown]
  - Electrocardiogram QT prolonged [Recovered/Resolved]
  - Sinus tachycardia [Unknown]
  - Ventricular tachycardia [Recovered/Resolved]
  - Hypotension [Unknown]
  - Torsade de pointes [Recovered/Resolved]
  - Ventricular arrhythmia [Recovered/Resolved]
  - Ventricular extrasystoles [Recovered/Resolved]
  - Hypokalaemia [Recovered/Resolved]
